FAERS Safety Report 4452019-2 (Version None)
Quarter: 2004Q3

REPORT INFORMATION
  Report Type: 
  Country: None (occurrence: None)
  Receive Date: 20040915
  Receipt Date: 20040915
  Transmission Date: 20050211
  Serious: Yes (Hospitalization)
  Sender: FDA-Public Use
  Company Number: None

PATIENT
  Age: 35 Year
  Sex: Female
  Weight: 94.4 kg

DRUGS (3)
  1. CEFTRIAXONE SODIUM [Suspect]
     Indication: ABDOMINAL ABSCESS
     Dosage: 2 G IV DAILY
     Route: 042
     Dates: start: 20040716, end: 20040730
  2. CEFTRIAXONE SODIUM [Suspect]
     Indication: DIVERTICULITIS
     Dosage: 2 G IV DAILY
     Route: 042
     Dates: start: 20040716, end: 20040730
  3. FLAGYL [Concomitant]

REACTIONS (3)
  - INFUSION RELATED REACTION [None]
  - PLATELET COUNT DECREASED [None]
  - PYREXIA [None]
